FAERS Safety Report 13938237 (Version 5)
Quarter: 2017Q4

REPORT INFORMATION
  Report Type: Report from Study
  Country: US (occurrence: US)
  Receive Date: 20170905
  Receipt Date: 20171212
  Transmission Date: 20180320
  Serious: Yes (Hospitalization, Other)
  Sender: FDA-Public Use
  Company Number: US-VIFOR (INTERNATIONAL) INC.-VIT-2017-08908

PATIENT
  Age: 71 Year
  Sex: Female

DRUGS (7)
  1. CLONIDINE. [Concomitant]
     Active Substance: CLONIDINE
  2. RENVELA [Concomitant]
     Active Substance: SEVELAMER CARBONATE
  3. ATORVASTATIN [Concomitant]
     Active Substance: ATORVASTATIN
  4. OMEPRAZOLE. [Concomitant]
     Active Substance: OMEPRAZOLE
  5. CARVEDILOL. [Concomitant]
     Active Substance: CARVEDILOL
  6. VELTASSA [Suspect]
     Active Substance: PATIROMER
     Indication: HYPERKALAEMIA
     Route: 048
     Dates: start: 201611, end: 201708
  7. AMLODIPINE [Concomitant]
     Active Substance: AMLODIPINE BESYLATE

REACTIONS (5)
  - Chest pain [Recovered/Resolved]
  - Headache [Recovered/Resolved]
  - Dialysis [Unknown]
  - Cardiac valve disease [Recovered/Resolved]
  - Blood disorder [Not Recovered/Not Resolved]

NARRATIVE: CASE EVENT DATE: 20170804
